FAERS Safety Report 7741214-2 (Version None)
Quarter: 2011Q3

REPORT INFORMATION
  Report Type: 
  Country: None (occurrence: None)
  Receive Date: 20110909
  Receipt Date: 20110901
  Transmission Date: 20111222
  Serious: Yes (Hospitalization)
  Sender: FDA-Public Use
  Company Number: PHHY2011TR78626

PATIENT
  Sex: Male

DRUGS (1)
  1. WARFARIN SODIUM [Suspect]
     Dosage: UNK UKN, UNK
     Route: 064

REACTIONS (14)
  - DYSMORPHISM [None]
  - NECK DEFORMITY [None]
  - NASAL CONGESTION [None]
  - RESPIRATORY FAILURE [None]
  - FLAT ANTERIOR CHAMBER OF EYE [None]
  - PREMATURE BABY [None]
  - FOETAL WARFARIN SYNDROME [None]
  - MATERNAL EXPOSURE DURING PREGNANCY [None]
  - ABNORMAL PALMAR/PLANTAR CREASES [None]
  - ATRIAL SEPTAL DEFECT [None]
  - FEEDING DISORDER NEONATAL [None]
  - HYPERTELORISM OF ORBIT [None]
  - PATENT DUCTUS ARTERIOSUS [None]
  - CHONDRODYSTROPHY [None]
